FAERS Safety Report 14779035 (Version 1)
Quarter: 2018Q2

REPORT INFORMATION
  Report Type: Not Available
  Country: US (occurrence: US)
  Receive Date: 20180419
  Receipt Date: 20180419
  Transmission Date: 20180711
  Serious: No
  Sender: FDA-Public Use
  Company Number: US-NEUROCRINE BIOSCIENCES INC.-2018NBI01074

PATIENT
  Sex: Female

DRUGS (6)
  1. INGREZZA [Suspect]
     Active Substance: VALBENAZINE
     Indication: TARDIVE DYSKINESIA
     Route: 048
     Dates: start: 20170711
  2. ZOLPIDEM [Concomitant]
     Active Substance: ZOLPIDEM\ZOLPIDEM TARTRATE
  3. ARTANE [Concomitant]
     Active Substance: TRIHEXYPHENIDYL HYDROCHLORIDE
  4. PROPANOLOL [Concomitant]
     Active Substance: PROPRANOLOL HYDROCHLORIDE
  5. CLONAZEPAM. [Concomitant]
     Active Substance: CLONAZEPAM
  6. HALDOL [Concomitant]
     Active Substance: HALOPERIDOL

REACTIONS (1)
  - Constipation [Not Recovered/Not Resolved]
